FAERS Safety Report 8377610-2 (Version None)
Quarter: 2012Q2

REPORT INFORMATION
  Report Type: 
  Country: None (occurrence: None)
  Receive Date: 20120522
  Receipt Date: 20120516
  Transmission Date: 20120825
  Serious: Yes (Hospitalization, Disabling, Other)
  Sender: FDA-Public Use
  Company Number: NZ-PFIZER INC-2012068881

PATIENT
  Age: 40 Year
  Sex: Female
  Weight: 95 kg

DRUGS (8)
  1. ASPIRIN [Concomitant]
     Dosage: 100 MG, 1X/DAY
  2. ASPIRIN [Concomitant]
     Dosage: 75 MG, 1X/DAY
  3. VARENICLINE TARTRATE [Suspect]
     Indication: SMOKING CESSATION THERAPY
     Dosage: 1 MG, 2X/DAY
     Route: 048
     Dates: start: 20120122, end: 20120101
  4. FLUOXETINE [Interacting]
     Indication: DEPRESSION
     Dosage: 20 MG, UNK
  5. PROVERA [Concomitant]
     Dosage: 10 MG, 1X/DAY
  6. FLUOXETINE [Interacting]
     Dosage: 20 MG, 2X/DAY
  7. FLUOXETINE [Interacting]
     Dosage: 40 MOL, 1X/DAY
  8. OMEPRAZOLE [Concomitant]
     Dosage: 40 MG, 1X/DAY

REACTIONS (22)
  - DRUG INTERACTION [None]
  - PANIC ATTACK [None]
  - HALLUCINATION, AUDITORY [None]
  - CRYING [None]
  - HEADACHE [None]
  - DIZZINESS [None]
  - CONVULSION [None]
  - NAUSEA [None]
  - FEAR [None]
  - BLOOD PRESSURE DECREASED [None]
  - DEPRESSION [None]
  - AMNESIA [None]
  - DISORIENTATION [None]
  - TINNITUS [None]
  - FEELING COLD [None]
  - FATIGUE [None]
  - TREMOR [None]
  - PULSE PRESSURE INCREASED [None]
  - HEART RATE INCREASED [None]
  - SUICIDAL IDEATION [None]
  - EYE MOVEMENT DISORDER [None]
  - EMOTIONAL DISORDER [None]
